FAERS Safety Report 5795192-6 (Version None)
Quarter: 2008Q2

REPORT INFORMATION
  Report Type: 
  Country: None (occurrence: None)
  Receive Date: 20080601
  Receipt Date: 20080128
  Transmission Date: 20081010
  Serious: No
  Sender: FDA-Public Use
  Company Number: US200801006355

PATIENT
  Sex: Female

DRUGS (2)
  1. BYETTA [Suspect]
     Dosage: SUBCUTANEOUS ; 10 UG, 2/D,
     Route: 058
     Dates: start: 20070101, end: 20070101
  2. BYETTA [Suspect]
     Dosage: SUBCUTANEOUS ; 10 UG, 2/D,
     Route: 058
     Dates: start: 20070101

REACTIONS (2)
  - MALAISE [None]
  - VOMITING [None]
